FAERS Safety Report 15832586 (Version 2)
Quarter: 2019Q1

REPORT INFORMATION
  Report Type: Report from Study
  Country: GB (occurrence: GB)
  Receive Date: 20190116
  Receipt Date: 20190206
  Transmission Date: 20190417
  Serious: Yes (Hospitalization, Other)
  Sender: FDA-Public Use
  Company Number: PHHO2016GB007434

PATIENT
  Age: 3 Year
  Sex: Female
  Weight: 21 kg

DRUGS (4)
  1. EVEROLIMUS. [Suspect]
     Active Substance: EVEROLIMUS
     Indication: TUBEROUS SCLEROSIS COMPLEX
     Dosage: 7 NG/ML, (3-7 NG/ML)
     Route: 048
     Dates: start: 20150409, end: 20170202
  2. EVEROLIMUS. [Suspect]
     Active Substance: EVEROLIMUS
     Dosage: 12 MG, UNK
     Route: 048
  3. SODIUM VALPROATE [Concomitant]
     Active Substance: VALPROATE SODIUM
     Indication: EPILEPSY
     Route: 065
     Dates: end: 20161114
  4. TOPIRAMATE. [Concomitant]
     Active Substance: TOPIRAMATE
     Indication: EPILEPSY
     Route: 065
     Dates: end: 20161114

REACTIONS (10)
  - Febrile neutropenia [Recovered/Resolved]
  - Dehydration [Recovered/Resolved]
  - Pulmonary alveolar haemorrhage [Not Recovered/Not Resolved]
  - Oral herpes [Recovered/Resolved]
  - Oral herpes [Recovered/Resolved]
  - Varicella [Recovered/Resolved]
  - Lower respiratory tract infection [Recovered/Resolved]
  - Lower respiratory tract infection [Recovered/Resolved]
  - Pancytopenia [Recovered/Resolved]
  - Pneumonia [Recovered/Resolved]

NARRATIVE: CASE EVENT DATE: 20160509
